FAERS Safety Report 6141670-X (Version None)
Quarter: 2009Q1

REPORT INFORMATION
  Report Type: 
  Country: None (occurrence: None)
  Receive Date: 20090331
  Receipt Date: 20090331
  Transmission Date: 20090719
  Serious: No
  Sender: FDA-Public Use
  Company Number: None

PATIENT
  Age: 28 Year
  Sex: Female
  Weight: 68.0396 kg

DRUGS (2)
  1. AMANTADINE HCL [Suspect]
     Indication: INFLUENZA
     Dosage: 2 CAPSULES TWICE DAILY PO 1 DAY ONLY
     Route: 048
     Dates: start: 20090328, end: 20090328
  2. TAMIFLU [Suspect]
     Indication: INFLUENZA
     Dosage: 2 CAPSULES TWICE DAILY PO 1 DAY ONLY
     Route: 048
     Dates: start: 20090328, end: 20090328

REACTIONS (2)
  - DRUG HYPERSENSITIVITY [None]
  - SYNCOPE [None]
